FAERS Safety Report 12272731 (Version 1)
Quarter: 2016Q2

REPORT INFORMATION
  Report Type: Spontaneous
  Country: US (occurrence: US)
  Receive Date: 20160415
  Receipt Date: 20160415
  Transmission Date: 20160815
  Serious: No
  Sender: FDA-Public Use
  Company Number: US-PFIZER INC-2016203232

PATIENT
  Age: 33 Year
  Sex: Male

DRUGS (3)
  1. VISTARIL [Suspect]
     Active Substance: HYDROXYZINE PAMOATE
     Indication: RASH
     Dosage: UNK
  2. PEPCID [Suspect]
     Active Substance: FAMOTIDINE
     Indication: RASH
     Dosage: UNK
  3. PREDNISONE. [Suspect]
     Active Substance: PREDNISONE
     Indication: RASH
     Dosage: PULSE

REACTIONS (1)
  - Drug ineffective for unapproved indication [Unknown]
